FAERS Safety Report 21715087 (Version 1)
Quarter: 2022Q4

REPORT INFORMATION
  Report Type: Spontaneous
  Country: JP (occurrence: JP)
  Receive Date: 20221212
  Receipt Date: 20221212
  Transmission Date: 20230112
  Serious: Yes (Death, Other)
  Sender: FDA-Public Use
  Company Number: JP-ONO-2022JP028737

PATIENT

DRUGS (1)
  1. ONGENTYS [Suspect]
     Active Substance: OPICAPONE
     Indication: Parkinson^s disease
     Dosage: 25 MILLIGRAM, 1X / DAY
     Route: 048
     Dates: start: 20210322

REACTIONS (2)
  - Death [Fatal]
  - Dyskinesia [Unknown]

NARRATIVE: CASE EVENT DATE: 20210830
